FAERS Safety Report 10268583 (Version 2)
Quarter: 2014Q2

REPORT INFORMATION
  Report Type: Spontaneous
  Country: FI (occurrence: FI)
  Receive Date: 20140630
  Receipt Date: 20140630
  Transmission Date: 20141212
  Serious: Yes (Other)
  Sender: FDA-Public Use
  Company Number: FI-PFIZER INC-2014145366

PATIENT
  Age: 63 Year
  Sex: Male

DRUGS (2)
  1. LYRICA [Suspect]
     Indication: NEURALGIA
     Dosage: 225 MG, 2X/DAY (IN THE MORNING AND IN THE EVENING)
  2. LYRICA [Suspect]
     Dosage: 75 MG TWICE DAILY AND 225 MG IN THE EVENING

REACTIONS (8)
  - Abasia [Unknown]
  - Confusional state [Unknown]
  - Feeling drunk [Unknown]
  - Joint range of motion decreased [Unknown]
  - Muscular weakness [Unknown]
  - Gait disturbance [Unknown]
  - Musculoskeletal disorder [Unknown]
  - General physical health deterioration [Unknown]
